FAERS Safety Report 4297367-4 (Version None)
Quarter: 2004Q1

REPORT INFORMATION
  Report Type: 
  Country: None (occurrence: None)
  Receive Date: 20040213
  Receipt Date: 20040205
  Transmission Date: 20041129
  Serious: Yes (Hospitalization)
  Sender: FDA-Public Use
  Company Number: A0431955A

PATIENT
  Age: 50 Year
  Sex: Female

DRUGS (7)
  1. NICORETTE [Suspect]
     Indication: EX-SMOKER
     Dosage: 4 MG/AS REQUIRED/TRANSBUCCAL
     Dates: start: 20030730
  2. ASPIRIN [Concomitant]
  3. CAPTOPRIL [Concomitant]
  4. THYROXINE SODIUM [Concomitant]
  5. OLANZAPINE [Concomitant]
  6. ALPRAZOLAM [Concomitant]
  7. METHADONE HYDROCHLORIDE [Concomitant]

REACTIONS (6)
  - ANGINA PECTORIS [None]
  - CORONARY ARTERY STENOSIS [None]
  - DYSPNOEA EXERTIONAL [None]
  - SEDATION [None]
  - SOMNOLENCE [None]
  - WEIGHT INCREASED [None]
